FAERS Safety Report 10260998 (Version 1)
Quarter: 2014Q2

REPORT INFORMATION
  Report Type: Spontaneous
  Country: US (occurrence: US)
  Receive Date: 20140626
  Receipt Date: 20140626
  Transmission Date: 20141212
  Serious: No
  Sender: FDA-Public Use
  Company Number: US-PFIZER INC-2014175263

PATIENT
  Age: 68 Year
  Sex: Male
  Weight: 95.69 kg

DRUGS (4)
  1. CELEBREX [Suspect]
     Indication: ARTHRALGIA
     Dosage: UNK, 1X/DAY
  2. LIPITOR [Concomitant]
     Indication: BLOOD CHOLESTEROL INCREASED
     Dosage: UNK
  3. MYSOLINE [Concomitant]
     Indication: TREMOR
     Dosage: UNK
  4. PAXIL [Concomitant]
     Indication: ANXIETY
     Dosage: UNK

REACTIONS (1)
  - Arthritis [Unknown]
